FAERS Safety Report 6451285-1 (Version None)
Quarter: 2009Q4

REPORT INFORMATION
  Report Type: 
  Country: None (occurrence: None)
  Receive Date: 20091123
  Receipt Date: 20091123
  Transmission Date: 20100525
  Serious: Yes (Hospitalization, Other)
  Sender: FDA-Public Use
  Company Number: US-PFIZER INC-2009283698

PATIENT
  Sex: Male

DRUGS (2)
  1. ANTILYMPHOCYTE IMMUNOGLOBULINS [Suspect]
     Dosage: UNK
  2. SOLIRIS [Suspect]
     Dosage: 10 MG/ML, UNK
     Route: 042
     Dates: start: 20090625, end: 20090625

REACTIONS (3)
  - LEUKOPENIA [None]
  - PNEUMONIA [None]
  - SINUSITIS [None]
